FAERS Safety Report 5413570-1 (Version None)
Quarter: 2007Q3

REPORT INFORMATION
  Report Type: 
  Country: None (occurrence: None)
  Receive Date: 20070814
  Receipt Date: 20070810
  Transmission Date: 20080115
  Serious: Yes (Other)
  Sender: FDA-Public Use
  Company Number: US-ASTRAZENECA-2007UW12162

PATIENT
  Age: 46 Year
  Sex: Female
  Weight: 122.5 kg

DRUGS (5)
  1. SEROQUEL [Suspect]
     Route: 048
     Dates: start: 20050101, end: 20070101
  2. SEROQUEL [Suspect]
     Route: 048
  3. ZONEGRAN [Concomitant]
     Indication: CONVULSION
  4. ZOLOFT [Concomitant]
     Route: 030
  5. PRINIVIL [Concomitant]
     Route: 048

REACTIONS (1)
  - DRUG WITHDRAWAL CONVULSIONS [None]
